FAERS Safety Report 14010693 (Version 1)
Quarter: 2017Q3

REPORT INFORMATION
  Report Type: Spontaneous
  Country: US (occurrence: US)
  Receive Date: 20170926
  Receipt Date: 20170926
  Transmission Date: 20171128
  Serious: No
  Sender: FDA-Public Use
  Company Number: US-USVNA-000005

PATIENT
  Sex: Female

DRUGS (1)
  1. OLOPATADINE HCL OPHTHALMIC SOLUTION USP 0.1% [Suspect]
     Active Substance: OLOPATADINE
     Indication: PRODUCT USED FOR UNKNOWN INDICATION
     Dosage: 1 DOSAGE UNITS; 2X/DAY

REACTIONS (3)
  - Eye pruritus [Unknown]
  - Dry eye [Unknown]
  - Inappropriate schedule of drug administration [Not Recovered/Not Resolved]
